FAERS Safety Report 4404424-8 (Version None)
Quarter: 2004Q3

REPORT INFORMATION
  Report Type: 
  Country: None (occurrence: None)
  Receive Date: 20040720
  Receipt Date: 20040707
  Transmission Date: 20050211
  Serious: Yes (Disabling, Other)
  Sender: FDA-Public Use
  Company Number: 2004000284

PATIENT
  Age: 28 Year
  Sex: Female
  Weight: 68.0396 kg

DRUGS (2)
  1. ZOLOFT [Suspect]
     Indication: ANXIETY
     Dosage: 150 MG (1 IN 1 D), ORAL
     Route: 048
     Dates: start: 20010101
  2. EUGYNON (ETHINYLESTRADIOL LEVONORGESTREL) [Concomitant]

REACTIONS (9)
  - ANTINUCLEAR ANTIBODY POSITIVE [None]
  - ASTHENIA [None]
  - FATIGUE [None]
  - HYPERREFLEXIA [None]
  - HYPOAESTHESIA [None]
  - MULTIPLE SCLEROSIS [None]
  - PARAESTHESIA [None]
  - STREPTOCOCCAL SEROLOGY POSITIVE [None]
  - STRESS SYMPTOMS [None]
